FAERS Safety Report 7395971-8 (Version None)
Quarter: 2011Q2

REPORT INFORMATION
  Report Type: 
  Country: None (occurrence: None)
  Receive Date: 20110406
  Receipt Date: 20110328
  Transmission Date: 20111010
  Serious: No
  Sender: FDA-Public Use
  Company Number: US-BIOGENIDEC-2011BI011818

PATIENT
  Age: 61 Year
  Sex: Female

DRUGS (2)
  1. AVONEX [Suspect]
     Indication: MULTIPLE SCLEROSIS
     Route: 030
     Dates: start: 20050103
  2. AVONEX [Suspect]
     Route: 030
     Dates: start: 19971017, end: 20041001

REACTIONS (4)
  - AGEUSIA [None]
  - FATIGUE [None]
  - CHEST PAIN [None]
  - MULTIPLE SCLEROSIS RELAPSE [None]
